FAERS Safety Report 9523411 (Version 2)
Quarter: 2013Q3

REPORT INFORMATION
  Report Type: Report from Study
  Country: US (occurrence: US)
  Receive Date: 20130913
  Receipt Date: 20130913
  Transmission Date: 20140515
  Serious: Yes (Hospitalization)
  Sender: FDA-Public Use
  Company Number: US-ABBOTT-13P-163-1112739-00

PATIENT
  Age: 47 Year
  Sex: Female

DRUGS (17)
  1. HUMIRA [Suspect]
     Indication: CROHN^S DISEASE
     Dates: start: 20130515
  2. HUMIRA [Suspect]
  3. HUMIRA [Suspect]
     Dates: end: 20130724
  4. IMURAN [Concomitant]
     Indication: CROHN^S DISEASE
  5. IMURAN [Concomitant]
  6. IMURAN [Concomitant]
  7. GLIPIZIDE [Concomitant]
     Indication: DIABETES MELLITUS
  8. HYDROCHLOROTHIAZIDE [Concomitant]
     Indication: HYPERTENSION
  9. LISINOPRIL [Concomitant]
     Indication: HYPERTENSION
  10. OMEPRAZOLE [Concomitant]
     Indication: GASTROOESOPHAGEAL REFLUX DISEASE
  11. SYNTHROID [Concomitant]
     Indication: HYPOTHYROIDISM
  12. TRAZODONE [Concomitant]
     Indication: INSOMNIA
     Dosage: AT BEDTIME
  13. ZOCOR [Concomitant]
     Indication: BLOOD CHOLESTEROL INCREASED
  14. ZOLOFT [Concomitant]
     Indication: DEPRESSION
  15. MULTIVITAMIN [Concomitant]
     Indication: SUPPLEMENTATION THERAPY
  16. PREDNISONE [Concomitant]
     Dosage: TAPERING DOWN
  17. PREDNISONE [Concomitant]

REACTIONS (15)
  - Nodule [Not Recovered/Not Resolved]
  - Erythema [Not Recovered/Not Resolved]
  - Growing pains [Not Recovered/Not Resolved]
  - Feeling abnormal [Not Recovered/Not Resolved]
  - Pain in extremity [Not Recovered/Not Resolved]
  - Pain in extremity [Not Recovered/Not Resolved]
  - Pain [Not Recovered/Not Resolved]
  - Muscle tightness [Not Recovered/Not Resolved]
  - Muscle spasms [Not Recovered/Not Resolved]
  - Anal fistula [Not Recovered/Not Resolved]
  - Haematochezia [Not Recovered/Not Resolved]
  - Pain in extremity [Not Recovered/Not Resolved]
  - Rash maculo-papular [Not Recovered/Not Resolved]
  - Bacterial infection [Unknown]
  - Staphylococcal infection [Unknown]
